FAERS Safety Report 7520111-1 (Version None)
Quarter: 2011Q2

REPORT INFORMATION
  Report Type: 
  Country: None (occurrence: None)
  Receive Date: 20110602
  Receipt Date: 20110520
  Transmission Date: 20111010
  Serious: Yes (Other)
  Sender: FDA-Public Use
  Company Number: US-MYLANLABS-2011S1011316

PATIENT
  Sex: Female

DRUGS (2)
  1. MELPHALAN HYDROCHLORIDE [Suspect]
     Indication: RETINOBLASTOMA
     Route: 013
  2. HEPARIN [Concomitant]

REACTIONS (2)
  - VISUAL IMPAIRMENT [None]
  - RETINAL ISCHAEMIA [None]
